FAERS Safety Report 7130435-8 (Version None)
Quarter: 2010Q4

REPORT INFORMATION
  Report Type: 
  Country: None (occurrence: None)
  Receive Date: 20101116
  Receipt Date: 20101105
  Transmission Date: 20110411
  Serious: Yes (Other)
  Sender: FDA-Public Use
  Company Number: 749183

PATIENT
  Age: 71 Year
  Sex: Female

DRUGS (1)
  1. PACLITAXEL [Suspect]
     Indication: ENDOMETRIAL CANCER
     Dosage: 270 MG MILLIGRAM(S), INTRAVENOUS
     Route: 042
     Dates: start: 20101103, end: 20101103

REACTIONS (4)
  - DYSPNOEA [None]
  - HYPERAEMIA [None]
  - HYPERTENSIVE CRISIS [None]
  - MALAISE [None]
